FAERS Safety Report 10093061 (Version 1)
Quarter: 2014Q2

REPORT INFORMATION
  Report Type: Spontaneous
  Country: US (occurrence: US)
  Receive Date: 20140421
  Receipt Date: 20140421
  Transmission Date: 20141212
  Serious: No
  Sender: FDA-Public Use
  Company Number: US-SANOFI-AVENTIS-2013SA092688

PATIENT
  Age: 77 Year
  Sex: Male

DRUGS (6)
  1. ALLEGRA [Suspect]
     Indication: MYCOTIC ALLERGY
     Dosage: TAKEN FROM- ABOUT A YEAR AGO.
     Route: 048
  2. ALLEGRA [Suspect]
     Indication: EPISTAXIS
     Dosage: TAKEN FROM- ABOUT A YEAR AGO.
     Route: 048
  3. ALL OTHER THERAPEUTIC PRODUCTS [Concomitant]
     Route: 065
     Dates: start: 20130909
  4. OREGANO/LEVOMENTHOL/PEPPERMINT OIL/BROMHEXINE/FENNEL/ANISE OIL/EUCALYPTUS OIL [Concomitant]
     Route: 065
     Dates: start: 20130909
  5. OMEGA 3 [Concomitant]
     Route: 065
     Dates: start: 20130909
  6. ALL OTHER THERAPEUTIC PRODUCTS [Concomitant]
     Indication: MEMORY IMPAIRMENT
     Route: 065
     Dates: start: 20130909

REACTIONS (2)
  - Insomnia [Unknown]
  - Inappropriate schedule of drug administration [Unknown]
